FAERS Safety Report 9595384 (Version 1)
Quarter: 2013Q3

REPORT INFORMATION
  Report Type: Spontaneous
  Country: US (occurrence: None)
  Receive Date: 20130927
  Receipt Date: 20130927
  Transmission Date: 20140515
  Serious: Yes (Hospitalization)
  Sender: FDA-Public Use
  Company Number: CABO-13002913

PATIENT
  Age: 88 Year
  Sex: Male

DRUGS (3)
  1. COMETRIQ (CABOZANTINIB) CAPSULE [Suspect]
     Indication: PROSTATE CANCER
     Dosage: 60 MG, QD, ORAL
     Route: 048
     Dates: start: 20130405
  2. ALBUTEROL (SALBUTAMOL) [Concomitant]
  3. IPRATROPIUM (IPRATROPIUM) [Concomitant]

REACTIONS (6)
  - Bronchitis [None]
  - Pneumonia [None]
  - Urinary tract infection [None]
  - Dysphonia [None]
  - Oral pain [None]
  - Candida infection [None]
